FAERS Safety Report 8304319-3 (Version None)
Quarter: 2012Q2

REPORT INFORMATION
  Report Type: 
  Country: None (occurrence: None)
  Receive Date: 20120423
  Receipt Date: 20120423
  Transmission Date: 20120825
  Serious: Yes (Other)
  Sender: FDA-Public Use
  Company Number: None

PATIENT
  Age: 32 Year
  Sex: Female
  Weight: 56.699 kg

DRUGS (2)
  1. LEVOFLOXACIN [Concomitant]
  2. LEVOFLOXACIN [Suspect]
     Indication: SINUSITIS
     Dosage: 21
     Route: 048
     Dates: start: 20120412, end: 20120416

REACTIONS (4)
  - MYALGIA [None]
  - TOXICITY TO VARIOUS AGENTS [None]
  - GAIT DISTURBANCE [None]
  - TENDONITIS [None]
